FAERS Safety Report 9665736 (Version 4)
Quarter: 2014Q3

REPORT INFORMATION
  Report Type: Report from Study
  Country: CA (occurrence: CA)
  Receive Date: 20131104
  Receipt Date: 20140707
  Transmission Date: 20150326
  Serious: Yes (Hospitalization, Other)
  Sender: FDA-Public Use
  Company Number: PHHY2012CA032089

PATIENT
  Sex: Male

DRUGS (2)
  1. SANDOSTATIN LAR DEPOT [Suspect]
     Active Substance: OCTREOTIDE ACETATE
     Dosage: 20 MG, EVERY 3 WEEKS
     Route: 030
  2. SANDOSTATIN LAR DEPOT [Suspect]
     Active Substance: OCTREOTIDE ACETATE
     Indication: PANCREATIC CARCINOMA
     Dosage: 20 MG, EVERY 4 WEEKS
     Route: 030
     Dates: start: 20110309

REACTIONS (10)
  - Tongue discolouration [Unknown]
  - Pain of skin [Recovered/Resolved]
  - Faeces soft [Unknown]
  - Cerebrovascular accident [Unknown]
  - Skin mass [Unknown]
  - Hyperhidrosis [Unknown]
  - Malaise [Unknown]
  - Hypoaesthesia [Unknown]
  - Cerebral thrombosis [Recovered/Resolved]
  - Abdominal pain [Unknown]
